FAERS Safety Report 24257290 (Version 2)
Quarter: 2024Q3

REPORT INFORMATION
  Report Type: Spontaneous
  Country: US (occurrence: US)
  Receive Date: 20240828
  Receipt Date: 20240913
  Transmission Date: 20241016
  Serious: Yes (Other)
  Sender: SYMOGEN
  Company Number: US-PARTNER THERAPEUTICS-2024PTX00045

PATIENT
  Sex: Male

DRUGS (4)
  1. SARGRAMOSTIM [Suspect]
     Active Substance: SARGRAMOSTIM
     Indication: Prostate cancer recurrent
     Dosage: 200 ?G, SIX TIMES AT 14-DAY INTERVALS
     Route: 023
     Dates: start: 20120201, end: 2012
  2. SARGRAMOSTIM [Suspect]
     Active Substance: SARGRAMOSTIM
     Dosage: 200 ?G, EVERY 3 MONTHS X 7
     Route: 023
     Dates: end: 20130929
  3. INVESTIGATIONAL PRODUCT [Concomitant]
     Active Substance: INVESTIGATIONAL PRODUCT
     Indication: Prostate cancer recurrent
     Dosage: 100 ?G, SIX TIMES AT 14-DAY INTERVALS
     Route: 023
  4. INVESTIGATIONAL PRODUCT [Concomitant]
     Active Substance: INVESTIGATIONAL PRODUCT
     Dosage: 100 ?G, QUARTERLY
     Route: 023

REACTIONS (2)
  - Neutropenia [Recovered/Resolved]
  - Off label use [Recovered/Resolved]

NARRATIVE: CASE EVENT DATE: 20120201
